FAERS Safety Report 9685312 (Version 1)
Quarter: 2013Q4

REPORT INFORMATION
  Report Type: Spontaneous
  Country: US (occurrence: None)
  Receive Date: 20131112
  Receipt Date: 20131112
  Transmission Date: 20140711
  Serious: Yes (Life-Threatening, Hospitalization, Other)
  Sender: FDA-Public Use
  Company Number: None

PATIENT
  Age: 52 None
  Sex: Male
  Weight: 88.45 kg

DRUGS (9)
  1. TRUVADA [Suspect]
     Indication: HIV TEST POSITIVE
     Route: 048
     Dates: start: 20130318, end: 20131008
  2. TRUVADA [Concomitant]
  3. ISENTRESS [Concomitant]
  4. JANUMET [Concomitant]
  5. GLIMEPIRIDE [Concomitant]
  6. BENICAR/HCT [Concomitant]
  7. LOMOTIL [Concomitant]
  8. ANDROGEL [Concomitant]
  9. VITMAIN D-CAP [Concomitant]

REACTIONS (4)
  - Renal failure [None]
  - Depressed level of consciousness [None]
  - Blood glucose decreased [None]
  - Dialysis [None]
